FAERS Safety Report 8733001 (Version 14)
Quarter: 2014Q3

REPORT INFORMATION
  Report Type: Report from Study
  Country: CA (occurrence: CA)
  Receive Date: 20120820
  Receipt Date: 20140729
  Transmission Date: 20150326
  Serious: Yes (Hospitalization, Other)
  Sender: FDA-Public Use
  Company Number: CA-ROCHE-1103229

PATIENT
  Age: 68 Year
  Sex: Female
  Weight: 74 kg

DRUGS (27)
  1. GABAPENTIN. [Concomitant]
     Active Substance: GABAPENTIN
  2. RITUXAN [Suspect]
     Active Substance: RITUXIMAB
     Route: 065
     Dates: start: 20120712
  3. AMLODIPINE [Concomitant]
     Active Substance: AMLODIPINE BESYLATE
  4. PARIET [Concomitant]
     Active Substance: RABEPRAZOLE SODIUM
  5. TYLENOL [Concomitant]
     Active Substance: ACETAMINOPHEN
  6. CUPRIMINE [Concomitant]
     Active Substance: PENICILLAMINE
  7. PREDNISONE. [Concomitant]
     Active Substance: PREDNISONE
  8. BABY ASPIRIN [Concomitant]
     Active Substance: ASPIRIN
  9. VITAMIN E [Concomitant]
     Active Substance: .ALPHA.-TOCOPHEROL
  10. SYNTHROID [Concomitant]
     Active Substance: LEVOTHYROXINE SODIUM
     Dosage: DOSE INCREASED
     Route: 065
  11. ACETAMINOPHEN. [Concomitant]
     Active Substance: ACETAMINOPHEN
     Indication: PREMEDICATION
     Route: 048
     Dates: start: 20100317
  12. DOMPERIDONE [Concomitant]
     Active Substance: DOMPERIDONE
  13. VITAMIN B12 [Concomitant]
     Active Substance: CYANOCOBALAMIN
  14. SYNTHROID [Concomitant]
     Active Substance: LEVOTHYROXINE SODIUM
     Route: 065
  15. DIPHENHYDRAMINE HCL [Concomitant]
     Active Substance: DIPHENHYDRAMINE HYDROCHLORIDE
     Indication: PREMEDICATION
     Route: 048
     Dates: start: 20100317
  16. METHYLPREDNISOLONE [Concomitant]
     Active Substance: METHYLPREDNISOLONE
     Indication: PREMEDICATION
     Route: 042
     Dates: start: 20100317
  17. NOVORAPID [Concomitant]
     Active Substance: INSULIN ASPART
  18. CONJUGATED ESTROGENS [Concomitant]
     Active Substance: ESTROGENS, CONJUGATED
  19. OMEGA-3 ACIDS [Concomitant]
     Active Substance: OMEGA-3 FATTY ACIDS
  20. ARANESP [Concomitant]
     Active Substance: DARBEPOETIN ALFA
  21. MIRTAZAPINE. [Concomitant]
     Active Substance: MIRTAZAPINE
  22. FERROUS FUMARATE [Concomitant]
     Active Substance: FERROUS FUMARATE
  23. RITUXAN [Suspect]
     Active Substance: RITUXIMAB
     Indication: SCLERODERMA
     Dosage: DATE OF THE LAST DOSE PRIOR TO THE ADVERSSE EVENT RECIEVED 17/JAN/2013.
     Route: 042
     Dates: start: 20100317
  24. MEDROXYPROGESTERONE [Concomitant]
     Active Substance: MEDROXYPROGESTERONE
  25. HYDROMORPHONE [Concomitant]
     Active Substance: HYDROMORPHONE
  26. MAGNESIUM CITRATE. [Concomitant]
     Active Substance: MAGNESIUM CITRATE
     Route: 065
  27. CIPRALEX [Concomitant]
     Active Substance: ESCITALOPRAM OXALATE

REACTIONS (17)
  - Eye haemorrhage [Unknown]
  - Skin bacterial infection [Unknown]
  - Gastrointestinal haemorrhage [Recovered/Resolved]
  - Optic nerve injury [Not Recovered/Not Resolved]
  - Haematochezia [Unknown]
  - Escherichia infection [Recovered/Resolved]
  - Blindness [Unknown]
  - Hypotension [Unknown]
  - Loss of consciousness [Recovered/Resolved]
  - Sepsis [Unknown]
  - Gastric polyps [Unknown]
  - Blood test abnormal [Unknown]
  - Ovarian cyst [Not Recovered/Not Resolved]
  - Ovarian mass [Not Recovered/Not Resolved]
  - Off label use [Unknown]
  - Papilloedema [Not Recovered/Not Resolved]
  - Haemoglobin decreased [Unknown]

NARRATIVE: CASE EVENT DATE: 2012
